FAERS Safety Report 8070406-0 (Version None)
Quarter: 2012Q1

REPORT INFORMATION
  Report Type: 
  Country: None (occurrence: None)
  Receive Date: 20120125
  Receipt Date: 20120113
  Transmission Date: 20120608
  Serious: Yes (Death, Hospitalization)
  Sender: FDA-Public Use
  Company Number: US-ROCHE-1031101

PATIENT
  Sex: Male
  Weight: 80.5 kg

DRUGS (3)
  1. CISPLATIN [Suspect]
     Indication: HEAD AND NECK CANCER
     Dosage: OVER 1-2 HRS, DAY1
     Route: 042
     Dates: start: 20111207
  2. DOCETAXEL [Suspect]
     Indication: HEAD AND NECK CANCER
     Dosage: OVER 1 HR, DAY 1
     Route: 042
     Dates: start: 20111207
  3. AVASTIN [Suspect]
     Indication: HEAD AND NECK CANCER
     Dosage: OVER 30-90 MINS, DAY 1
     Route: 042
     Dates: start: 20111207

REACTIONS (1)
  - CARDIAC ARREST [None]
